FAERS Safety Report 18046638 (Version 2)
Quarter: 2020Q3

REPORT INFORMATION
  Report Type: Spontaneous
  Country: ES (occurrence: ES)
  Receive Date: 20200721
  Receipt Date: 20200722
  Transmission Date: 20201103
  Serious: Yes (Life-Threatening, Hospitalization)
  Sender: FDA-Public Use
  Company Number: ES-009507513-2007ESP006619

PATIENT
  Age: 64 Year
  Sex: Male

DRUGS (4)
  1. OPENVAS (OLMESARTAN MEDOXOMIL) [Concomitant]
     Active Substance: OLMESARTAN MEDOXOMIL
  2. RASAGILINE. [Suspect]
     Active Substance: RASAGILINE
  3. CARDURAN NEO [Concomitant]
     Active Substance: DOXAZOSIN MESYLATE
  4. SINEMET PLUS 25/100 MG (IR) [Suspect]
     Active Substance: CARBIDOPA\LEVODOPA
     Indication: PARKINSON^S DISEASE
     Dosage: UNK
     Route: 048
     Dates: start: 2014

REACTIONS (2)
  - Stevens-Johnson syndrome [Recovered/Resolved]
  - Inguinal hernia [Unknown]

NARRATIVE: CASE EVENT DATE: 2015
